FAERS Safety Report 16770956 (Version 1)
Quarter: 2019Q3

REPORT INFORMATION
  Report Type: Spontaneous
  Country: US (occurrence: US)
  Receive Date: 20190715
  Receipt Date: 20190715
  Transmission Date: 20191005
  Serious: Yes (Hospitalization)
  Sender: FDA-Public Use
  Company Number: None

PATIENT
  Sex: Female

DRUGS (4)
  1. GANRELIX SYR [Concomitant]
  2. FOLLISTIM [Concomitant]
     Active Substance: FOLLITROPIN
  3. MENOPUR SDV [Concomitant]
  4. PROGRESTERONE 50MG/ML MDV [Suspect]
     Active Substance: PROGESTERONE
     Indication: INFERTILITY
     Route: 030
     Dates: start: 20190612

REACTIONS (2)
  - Headache [None]
  - Breast pain [None]
